FAERS Safety Report 9258081 (Version 1)
Quarter: 2013Q2

REPORT INFORMATION
  Report Type: Spontaneous
  Country: CH (occurrence: None)
  Receive Date: 20130423
  Receipt Date: 20130423
  Transmission Date: 20140414
  Serious: Yes (Other)
  Sender: FDA-Public Use
  Company Number: CH-EMCURE-000707

PATIENT
  Age: 46 Year
  Sex: Male

DRUGS (6)
  1. CARMUSTINE [Suspect]
     Indication: CENTRAL NERVOUS SYSTEM LYMPHOMA
     Route: 042
  2. METHYLPREDNISOLONE (METHYLPREDNISOLONE) [Concomitant]
  3. ONDANSETRON (ONDANSETRON) [Concomitant]
  4. CYTARABINE (CYTARABINE) [Concomitant]
  5. THIOTEPA (THIOTEPA) [Concomitant]
  6. METHOTREXATE (METHOTREXATE) [Concomitant]

REACTIONS (5)
  - Acute coronary syndrome [None]
  - Hypertension [None]
  - Sinus tachycardia [None]
  - Chest pain [None]
  - Electrocardiogram ST segment depression [None]
